FAERS Safety Report 6154011-9 (Version None)
Quarter: 2009Q2

REPORT INFORMATION
  Report Type: 
  Country: None (occurrence: None)
  Receive Date: 20090414
  Receipt Date: 20090403
  Transmission Date: 20091009
  Serious: Yes (Hospitalization, Other)
  Sender: FDA-Public Use
  Company Number: PHHY2009JP09894

PATIENT
  Age: 76 Year
  Sex: Male

DRUGS (4)
  1. TEGRETOL [Suspect]
     Indication: TRIGEMINAL NEURALGIA
     Dosage: 200 MG, BID
     Route: 048
     Dates: end: 20090316
  2. ALLEGRA [Concomitant]
     Dosage: 60MG
     Route: 048
  3. OLMETEC [Concomitant]
     Dosage: 20MG
     Route: 048
  4. ANPLAG [Concomitant]
     Dosage: 100MG
     Route: 048

REACTIONS (5)
  - DRUG TOXICITY [None]
  - DYSPHAGIA [None]
  - FALL [None]
  - LOSS OF CONSCIOUSNESS [None]
  - QUADRIPLEGIA [None]
